FAERS Safety Report 13957633 (Version 1)
Quarter: 2017Q3

REPORT INFORMATION
  Report Type: Spontaneous
  Country: DE (occurrence: DE)
  Receive Date: 20170912
  Receipt Date: 20170912
  Transmission Date: 20171128
  Serious: Yes (Death, Life-Threatening, Hospitalization, Other)
  Sender: FDA-Public Use
  Company Number: DE-MACLEODS PHARMACEUTICALS US LTD-MAC2017005827

PATIENT

DRUGS (7)
  1. MIRTAZAPINE 30 MG [Suspect]
     Active Substance: MIRTAZAPINE
     Indication: SUICIDE ATTEMPT
     Dosage: 23.5 DF, (DOSE PER KG BODY WEIGHT: 13 MG/KG)
     Route: 065
  2. MIRTAZAPINE 30 MG [Suspect]
     Active Substance: MIRTAZAPINE
     Indication: DEPRESSION
     Dosage: UNK
     Route: 065
  3. SINUPRET FORTE [Suspect]
     Active Substance: HERBALS
     Indication: SUICIDE ATTEMPT
     Dosage: 5 DF, UNK
     Route: 065
  4. QUETIAPINE. [Suspect]
     Active Substance: QUETIAPINE
     Indication: SUICIDE ATTEMPT
     Dosage: 29 DF OF 200 MG AND 29 DF OF 300 MG
     Route: 065
  5. QUETIAPINE. [Suspect]
     Active Substance: QUETIAPINE
     Indication: SUICIDAL IDEATION
     Dosage: UNK
     Route: 065
  6. IBUPROFEN 400 MG [Suspect]
     Active Substance: IBUPROFEN
     Indication: SUICIDE ATTEMPT
     Dosage: 5 DF, UNK
     Route: 065
  7. IBUPROFEN 600 MG [Suspect]
     Active Substance: IBUPROFEN
     Indication: SUICIDE ATTEMPT
     Dosage: ABSOLUTE TOTAL QUANTITY 5 GRAM. DOSE; 8 MG/KG BODY WEIGHT
     Route: 065

REACTIONS (8)
  - Seizure [Unknown]
  - Toxicity to various agents [Unknown]
  - Condition aggravated [Fatal]
  - Acute respiratory distress syndrome [Unknown]
  - Respiratory failure [Fatal]
  - Hypoxia [Unknown]
  - Hypotension [Unknown]
  - Loss of consciousness [Unknown]
